FAERS Safety Report 20408494 (Version 2)
Quarter: 2022Q1

REPORT INFORMATION
  Report Type: Spontaneous
  Country: US (occurrence: US)
  Receive Date: 20220201
  Receipt Date: 20220311
  Transmission Date: 20220423
  Serious: No
  Sender: FDA-Public Use
  Company Number: US-ViiV Healthcare Limited-74255

PATIENT
  Sex: Male

DRUGS (17)
  1. RILPIVIRINE [Suspect]
     Active Substance: RILPIVIRINE
     Indication: HIV infection
     Dosage: UNK
     Route: 065
     Dates: start: 20220112, end: 20220112
  2. CABOTEGRAVIR [Suspect]
     Active Substance: CABOTEGRAVIR
     Indication: HIV infection
     Dosage: UNK
     Route: 065
     Dates: start: 20220112, end: 20220112
  3. ROSUVASTATIN [Concomitant]
     Active Substance: ROSUVASTATIN
     Indication: Product used for unknown indication
     Dosage: 1 DF, QD
     Route: 048
  4. FLOVENT HFA [Concomitant]
     Active Substance: FLUTICASONE PROPIONATE
     Indication: Product used for unknown indication
     Dosage: 2 PUFF(S), BID, 220 MCG/ACTUATION INHALATION HFA AEROSOL INHALER
     Route: 055
  5. FLUOROURACIL [Concomitant]
     Active Substance: FLUOROURACIL
     Indication: Product used for unknown indication
     Dosage: UNK, BID, FOR 5 DAYS , THEN WAIT FOR 9 DAYS BEFORE STARTING AGAIN
     Route: 061
  6. VITAMIN D2 [Concomitant]
     Active Substance: ERGOCALCIFEROL
     Indication: Product used for unknown indication
     Dosage: 1 DF, WE, (50,000 UNIT)
     Route: 048
  7. DEXILANT [Concomitant]
     Active Substance: DEXLANSOPRAZOLE
     Indication: Product used for unknown indication
     Dosage: 1 DF, QD, DELAYED RELEASE, BIPHASIC
     Route: 048
  8. VALACYCLOVIR [Concomitant]
     Active Substance: VALACYCLOVIR HYDROCHLORIDE
     Indication: Product used for unknown indication
     Dosage: 1 DF, QD
     Route: 048
  9. ALBUTEROL SULFATE [Concomitant]
     Active Substance: ALBUTEROL SULFATE
     Indication: Product used for unknown indication
     Dosage: UNK, INHALE 1 - 2 PUFFS (90 - 180 MCG) EVERY 4-6 HOURS AS NEEDED
     Route: 055
  10. ESCITALOPRAM OXALATE [Concomitant]
     Active Substance: ESCITALOPRAM OXALATE
     Indication: Product used for unknown indication
     Dosage: 1 DF, QD
     Route: 048
  11. VRAYLAR [Concomitant]
     Active Substance: CARIPRAZINE
     Indication: Product used for unknown indication
     Dosage: 1 DF, QD
     Route: 048
  12. SHINGRIX [Concomitant]
     Active Substance: RECOMBINANT VARICELLA ZOSTER VIRUS (VZV) GLYCOPROTEIN E
     Indication: Prophylaxis
     Dosage: 0.5 ML, ONCE, REPEAT AT 2-6 MONTHS
     Route: 030
  13. TROGARZO [Concomitant]
     Active Substance: IBALIZUMAB-UIYK
     Indication: Product used for unknown indication
     Dosage: UNK, Z, INFUSE 800 MG EVERY 2 WEEKS
     Route: 042
  14. TROGARZO [Concomitant]
     Active Substance: IBALIZUMAB-UIYK
     Dosage: UNK, Z, INFUSE 2,000 MG DILUTED IN 250ML NS INTRAVENOUSLY, INFUSE 800 MG EVERY 2 WEEKS
     Route: 042
  15. TIVICAY [Concomitant]
     Active Substance: DOLUTEGRAVIR SODIUM
     Indication: Product used for unknown indication
     Dosage: 1 DF, QD
     Route: 048
  16. PREZCOBIX [Concomitant]
     Active Substance: COBICISTAT\DARUNAVIR ETHANOLATE
     Indication: Product used for unknown indication
     Dosage: 1 DF, QD
     Route: 048
  17. POLYSPORIN STERILE OPHTHALMIC [Concomitant]
     Indication: Product used for unknown indication
     Dosage: 1 DF, TID, 500-10000 UNITS PER GRAM FOR 10 DAYS
     Route: 065

REACTIONS (3)
  - Viral load increased [Unknown]
  - Drug ineffective [Unknown]
  - Treatment failure [Unknown]

NARRATIVE: CASE EVENT DATE: 20220101
